FAERS Safety Report 5243374-4 (Version None)
Quarter: 2007Q1

REPORT INFORMATION
  Report Type: 
  Country: None (occurrence: None)
  Receive Date: 20070213
  Receipt Date: 20070206
  Transmission Date: 20070707
  Serious: Yes (Hospitalization, Disabling)
  Sender: FDA-Public Use
  Company Number: GXKR2007GB01437

PATIENT
  Age: 66 Year
  Sex: Female

DRUGS (8)
  1. ENALAPRIL MALEATE [Suspect]
     Indication: HYPERTENSION
     Dosage: 2.5 MG, ORAL; 5 MG, ORAL
     Route: 048
     Dates: start: 20061110, end: 20061212
  2. ENALAPRIL MALEATE [Suspect]
     Indication: HYPERTENSION
     Dosage: 2.5 MG, ORAL; 5 MG, ORAL
     Route: 048
     Dates: start: 20061013
  3. BECLOMETHASONE DIPROPIONATE (BECLOMETHASONE DIPROPIONATE) [Concomitant]
  4. BENDROFLUMETHAZINE (BENDROFLUMETHIAZIDE) [Concomitant]
  5. DIAZEPAM [Concomitant]
  6. FELODIPINE [Concomitant]
  7. LEVOTHYROXINE SODIUM [Concomitant]
  8. SIMVASTATIN [Concomitant]

REACTIONS (1)
  - MANIA [None]
